FAERS Safety Report 7818863-6 (Version None)
Quarter: 2011Q4

REPORT INFORMATION
  Report Type: 
  Country: None (occurrence: None)
  Receive Date: 20111017
  Receipt Date: 20111017
  Transmission Date: 20120403
  Serious: Yes (Disabling)
  Sender: FDA-Public Use
  Company Number: None

PATIENT
  Sex: Female
  Weight: 62.7 kg

DRUGS (3)
  1. VENLAFAXINE HCL EXTENDED-RELEASE [Suspect]
     Indication: POST-TRAUMATIC STRESS DISORDER
     Dosage: 37.5MG 1QAM ORAL
     Route: 048
     Dates: start: 20110901
  2. LEVOXYL [Concomitant]
  3. ADDERALL 5 [Concomitant]

REACTIONS (9)
  - RESTLESSNESS [None]
  - WEIGHT INCREASED [None]
  - DRUG INEFFECTIVE [None]
  - SOMNOLENCE [None]
  - HOSTILITY [None]
  - DEPRESSION [None]
  - HEADACHE [None]
  - NIGHTMARE [None]
  - ANGER [None]
